FAERS Safety Report 6727832-9 (Version None)
Quarter: 2010Q2

REPORT INFORMATION
  Report Type: 
  Country: None (occurrence: None)
  Receive Date: 20100517
  Receipt Date: 20100506
  Transmission Date: 20101027
  Serious: Yes (Other)
  Sender: FDA-Public Use
  Company Number: CO-JNJFOC-20100505436

PATIENT
  Age: 41 Year
  Sex: Female

DRUGS (3)
  1. REMICADE [Suspect]
     Indication: SPONDYLOARTHROPATHY
     Dosage: ^FOR SIX WEEKS^
     Route: 042
  2. LYRICA [Concomitant]
  3. LANSOPRAZOLE [Concomitant]

REACTIONS (1)
  - HAEMANGIOMA OF LIVER [None]
